FAERS Safety Report 11449340 (Version 2)
Quarter: 2015Q3

REPORT INFORMATION
  Report Type: Report from Study
  Country: US (occurrence: US)
  Receive Date: 20150902
  Receipt Date: 20150916
  Transmission Date: 20151125
  Serious: Yes (Hospitalization, Other)
  Sender: FDA-Public Use
  Company Number: DE-AMGEN-DEUCT2015089418

PATIENT
  Age: 9 Year
  Sex: Female

DRUGS (3)
  1. SOLU-MEDROL [Suspect]
     Active Substance: METHYLPREDNISOLONE SODIUM SUCCINATE
     Indication: HISTIOCYTOSIS HAEMATOPHAGIC
     Dosage: 93 UNK, ONE TIME DOSE
     Route: 042
     Dates: start: 20150824, end: 20150829
  2. BLINDED ETANERCEPT [Suspect]
     Active Substance: ETANERCEPT
     Indication: KAWASAKI^S DISEASE
     Dosage: UNK
     Route: 058
     Dates: start: 20150814, end: 20150820
  3. PLACEBO [Suspect]
     Active Substance: UNSPECIFIED INGREDIENT
     Indication: KAWASAKI^S DISEASE
     Dosage: UNK
     Route: 058
     Dates: start: 20150814, end: 20150820

REACTIONS (3)
  - Histiocytosis haematophagic [Unknown]
  - Juvenile idiopathic arthritis [Unknown]
  - Delirium [Unknown]

NARRATIVE: CASE EVENT DATE: 20150824
